FAERS Safety Report 21376286 (Version 1)
Quarter: 2022Q3

REPORT INFORMATION
  Report Type: Report from Study
  Country: US (occurrence: US)
  Receive Date: 20220926
  Receipt Date: 20220926
  Transmission Date: 20221027
  Serious: Yes (Hospitalization, Other)
  Sender: FDA-Public Use
  Company Number: US-BAYER-2022A133448

PATIENT
  Age: 62 Year
  Sex: Male
  Weight: 88.889 kg

DRUGS (4)
  1. ADEMPAS [Suspect]
     Active Substance: RIOCIGUAT
     Indication: Pulmonary arterial hypertension
     Dosage: UNK
     Dates: start: 20220622
  2. ADEMPAS [Suspect]
     Active Substance: RIOCIGUAT
     Indication: Pulmonary arterial hypertension
     Dosage: 1.5 MG, TID
     Route: 048
  3. TYVASO [Suspect]
     Active Substance: TREPROSTINIL
  4. OPSUMIT [Concomitant]
     Active Substance: MACITENTAN

REACTIONS (14)
  - Hypotension [None]
  - Blood pressure decreased [None]
  - Confusional state [None]
  - Encephalopathy [None]
  - Balance disorder [None]
  - Fall [None]
  - Fall [None]
  - Dizziness [None]
  - Weight increased [None]
  - Headache [None]
  - Epistaxis [None]
  - Skin abrasion [None]
  - Pain in jaw [None]
  - Oxygen saturation decreased [None]

NARRATIVE: CASE EVENT DATE: 20220901
